FAERS Safety Report 21364905 (Version 4)
Quarter: 2022Q4

REPORT INFORMATION
  Report Type: Report from Study
  Country: BR (occurrence: BR)
  Receive Date: 20220922
  Receipt Date: 20221215
  Transmission Date: 20230112
  Serious: Yes (Hospitalization, Other)
  Sender: FDA-Public Use
  Company Number: BR-ABBVIE-4128845

PATIENT
  Age: 49 Year
  Sex: Male
  Weight: 83 kg

DRUGS (2)
  1. HUMIRA [Suspect]
     Active Substance: ADALIMUMAB
     Indication: Crohn^s disease
     Dosage: FORM STRENGTH 40 MG
     Route: 058
     Dates: start: 20220903, end: 20220903
  2. HUMIRA [Suspect]
     Active Substance: ADALIMUMAB
     Dosage: FORM STRENGTH 40 MG FIRST ADMIN DATE: 2022
     Route: 058

REACTIONS (8)
  - Gastrointestinal inflammation [Recovering/Resolving]
  - Asthenia [Unknown]
  - Anaemia [Recovered/Resolved]
  - Fistula discharge [Recovering/Resolving]
  - Weight decreased [Not Recovered/Not Resolved]
  - Immunodeficiency [Unknown]
  - Pain [Recovered/Resolved]
  - Blood test abnormal [Unknown]

NARRATIVE: CASE EVENT DATE: 20220903
